FAERS Safety Report 24903801 (Version 2)
Quarter: 2025Q1

REPORT INFORMATION
  Report Type: Spontaneous
  Country: GB (occurrence: GB)
  Receive Date: 20250130
  Receipt Date: 20250219
  Transmission Date: 20250409
  Serious: No
  Sender: AMGEN
  Company Number: GB-UCBSA-2025004644

PATIENT
  Sex: Female

DRUGS (2)
  1. EVENITY [Suspect]
     Active Substance: ROMOSOZUMAB-AQQG
     Indication: Osteoporosis
     Route: 065
  2. CALCIUM [Concomitant]
     Active Substance: CALCIUM
     Indication: Product used for unknown indication
     Route: 065

REACTIONS (3)
  - Lower limb fracture [Unknown]
  - Pain in extremity [Unknown]
  - Dizziness [Unknown]

NARRATIVE: CASE EVENT DATE: 20250115
